FAERS Safety Report 21726281 (Version 1)
Quarter: 2022Q4

REPORT INFORMATION
  Report Type: Report from Study
  Country: DE (occurrence: None)
  Receive Date: 20221214
  Receipt Date: 20221214
  Transmission Date: 20230113
  Serious: Yes (Other)
  Sender: FDA-Public Use
  Company Number: DE-Merck Healthcare KGaA-9371937

PATIENT
  Age: 52 Year
  Sex: Female

DRUGS (1)
  1. REBIF [Suspect]
     Active Substance: INTERFERON BETA-1A
     Indication: Multiple sclerosis
     Route: 058
     Dates: start: 2010

REACTIONS (6)
  - Hip surgery [Unknown]
  - Femur fracture [Unknown]
  - Ligament sprain [Unknown]
  - Muscular weakness [Unknown]
  - Mobility decreased [Unknown]
  - Post procedural complication [Unknown]

NARRATIVE: CASE EVENT DATE: 20190101
